FAERS Safety Report 15230116 (Version 2)
Quarter: 2019Q3

REPORT INFORMATION
  Report Type: Spontaneous
  Country: US (occurrence: US)
  Receive Date: 20180802
  Receipt Date: 20190805
  Transmission Date: 20191004
  Serious: Yes (Other)
  Sender: FDA-Public Use
  Company Number: US-ACCORD-065270

PATIENT
  Age: 51 Year
  Sex: Female
  Weight: 85.28 kg

DRUGS (6)
  1. CARBOPLATIN. [Suspect]
     Active Substance: CARBOPLATIN
     Indication: BREAST CANCER
  2. PARACETAMOL [Concomitant]
     Active Substance: ACETAMINOPHEN
  3. HYDROCODONE BITARTRATE/PARACETAMOL [Concomitant]
  4. PREDNISONE. [Concomitant]
     Active Substance: PREDNISONE
  5. DOCETAXEL ACCORD [Suspect]
     Active Substance: DOCETAXEL
     Indication: BREAST CANCER
     Dosage: NUMBER OF CYCLES:  04
     Dates: start: 20160712, end: 20170110
  6. LEVOFLOXACIN. [Concomitant]
     Active Substance: LEVOFLOXACIN

REACTIONS (1)
  - Alopecia [Not Recovered/Not Resolved]

NARRATIVE: CASE EVENT DATE: 201608
